FAERS Safety Report 12408038 (Version 3)
Quarter: 2016Q3

REPORT INFORMATION
  Report Type: Spontaneous
  Country: US (occurrence: US)
  Receive Date: 20160526
  Receipt Date: 20160825
  Transmission Date: 20161109
  Serious: Yes (Other)
  Sender: FDA-Public Use
  Company Number: US-GLAXOSMITHKLINE-US2016067844

PATIENT
  Age: 73 Year
  Sex: Female

DRUGS (12)
  1. ADVAIR DISKUS [Suspect]
     Active Substance: FLUTICASONE PROPIONATE\SALMETEROL XINAFOATE
     Dosage: 1 PUFF(S), BID
     Route: 055
     Dates: start: 201605
  2. PREDNISONE. [Concomitant]
     Active Substance: PREDNISONE
  3. ATORVASTATIN [Concomitant]
     Active Substance: ATORVASTATIN
  4. TOLTERODINE [Concomitant]
     Active Substance: TOLTERODINE
  5. SPIRIVA RESPIMAT [Concomitant]
     Active Substance: TIOTROPIUM BROMIDE
  6. AZELASTINE [Concomitant]
     Active Substance: AZELASTINE
  7. DIAZEPAM. [Concomitant]
     Active Substance: DIAZEPAM
  8. GABAPENTIN. [Concomitant]
     Active Substance: GABAPENTIN
  9. ALBUTEROL + IPRATROPIUM [Concomitant]
     Route: 055
  10. ADVAIR DISKUS [Suspect]
     Active Substance: FLUTICASONE PROPIONATE\SALMETEROL XINAFOATE
     Indication: CHRONIC OBSTRUCTIVE PULMONARY DISEASE
     Dosage: 1 PUFF(S), BID
     Route: 055
     Dates: start: 20160511
  11. LOSARTAN. [Concomitant]
     Active Substance: LOSARTAN
  12. OXYGEN. [Suspect]
     Active Substance: OXYGEN
     Indication: CHRONIC OBSTRUCTIVE PULMONARY DISEASE
     Dosage: CONTINUOUS 24 HOURS PER DAY/7 DAYS PER WEEK
     Route: 055

REACTIONS (6)
  - Drug dose omission [Recovered/Resolved]
  - Treatment noncompliance [Unknown]
  - Hypoxia [Unknown]
  - Dyspnoea [Unknown]
  - Feeling abnormal [Unknown]
  - Device use error [Recovered/Resolved]

NARRATIVE: CASE EVENT DATE: 20160511
